FAERS Safety Report 5311531-4 (Version None)
Quarter: 2007Q2

REPORT INFORMATION
  Report Type: 
  Country: None (occurrence: None)
  Receive Date: 20070426
  Receipt Date: 20070426
  Transmission Date: 20071010
  Serious: Yes (Hospitalization, Other)
  Sender: FDA-Public Use
  Company Number: None

PATIENT
  Age: 59 Year
  Sex: Male
  Weight: 104.3273 kg

DRUGS (13)
  1. SEPTRA [Suspect]
     Indication: URINARY TRACT INFECTION
     Dates: start: 20041101, end: 20061106
  2. HALDOL [Concomitant]
  3. TERAZOSIN HCL [Concomitant]
  4. LORAZEPAM [Concomitant]
  5. METFORMIN HCL [Concomitant]
  6. ATENOLOL [Concomitant]
  7. SIMVASTATIN [Concomitant]
  8. GLYBURIDE [Concomitant]
  9. SALSALATE [Concomitant]
  10. CLOPIDOGREL [Concomitant]
  11. WARFARIN SODIUM [Concomitant]
  12. BENZTROPINE [Concomitant]
  13. DIVALPROEX SODIUM [Concomitant]

REACTIONS (3)
  - PRURITUS [None]
  - RASH MACULAR [None]
  - RENAL FAILURE ACUTE [None]
